FAERS Safety Report 6780261-4 (Version None)
Quarter: 2010Q2

REPORT INFORMATION
  Report Type: 
  Country: None (occurrence: None)
  Receive Date: 20100618
  Receipt Date: 20100610
  Transmission Date: 20101027
  Serious: Yes (Hospitalization)
  Sender: FDA-Public Use
  Company Number: US-WYE-H15595910

PATIENT
  Age: 65 Year
  Sex: Male

DRUGS (1)
  1. TORISEL [Suspect]
     Indication: RENAL CELL CARCINOMA
     Route: 042
     Dates: start: 20100525, end: 20100601

REACTIONS (3)
  - DIARRHOEA [None]
  - HYPOVOLAEMIA [None]
  - RENAL FAILURE ACUTE [None]
